FAERS Safety Report 24366843 (Version 1)
Quarter: 2024Q3

REPORT INFORMATION
  Report Type: Other
  Country: RU (occurrence: RU)
  Receive Date: 20240926
  Receipt Date: 20240926
  Transmission Date: 20241017
  Serious: Yes (Hospitalization, Other)
  Sender: EYWA PHARMA
  Company Number: RU-Eywa Pharma Inc.-2162081

PATIENT
  Age: 33 Year
  Sex: Female

DRUGS (8)
  1. VALPROIC ACID [Suspect]
     Active Substance: VALPROIC ACID
     Indication: Status epilepticus
  2. LEVETIRACETAM [Suspect]
     Active Substance: LEVETIRACETAM
  3. Immunoglobulin [Concomitant]
  4. RITUXIMAB [Concomitant]
     Active Substance: RITUXIMAB
  5. METHYLPREDNISOLONE [Concomitant]
     Active Substance: METHYLPREDNISOLONE
  6. LACOSAMIDE [Suspect]
     Active Substance: LACOSAMIDE
  7. THIOPENTAL SODIUM [Suspect]
     Active Substance: THIOPENTAL SODIUM
  8. TOPIRAMATE [Suspect]
     Active Substance: TOPIRAMATE

REACTIONS (5)
  - Multiple organ dysfunction syndrome [Unknown]
  - Drug ineffective for unapproved indication [Unknown]
  - Exposure during pregnancy [Unknown]
  - Hepatic failure [Unknown]
  - Coma [Unknown]
